FAERS Safety Report 24429768 (Version 2)
Quarter: 2025Q2

REPORT INFORMATION
  Report Type: Spontaneous
  Country: US (occurrence: US)
  Receive Date: 20241012
  Receipt Date: 20250429
  Transmission Date: 20250716
  Serious: Yes (Hospitalization, Other)
  Sender: CHATTEM
  Company Number: US-OPELLA-2024OHG034835

PATIENT
  Age: 76 Year
  Sex: Male

DRUGS (1)
  1. GOLD BOND ORIGINAL STRENGTH [Suspect]
     Active Substance: MENTHOL
     Indication: Product used for unknown indication
     Route: 065

REACTIONS (3)
  - Lung neoplasm malignant [Unknown]
  - Exposure to chemical pollution [Unknown]
  - Occupational exposure to toxic agent [Unknown]

NARRATIVE: CASE EVENT DATE: 19680101
